FAERS Safety Report 6791115-1 (Version None)
Quarter: 2010Q2

REPORT INFORMATION
  Report Type: 
  Country: None (occurrence: None)
  Receive Date: 20100624
  Receipt Date: 20100622
  Transmission Date: 20101027
  Serious: Yes (Life-Threatening)
  Sender: FDA-Public Use
  Company Number: GXKR2010DE06893

PATIENT
  Age: 78 Year
  Sex: Female

DRUGS (17)
  1. RAMIPRIL+HYDROCHLOROTHIAZIDE (NGX) [Suspect]
     Indication: HYPERTENSION
     Route: 048
  2. PANTOPRAZOLE [Concomitant]
     Route: 048
  3. METFORMIN HCL [Concomitant]
     Route: 048
  4. GLIMEPIRIDE [Concomitant]
     Route: 048
  5. ACETYLSALICYLIC ACID [Concomitant]
     Route: 048
  6. CLOPIDOGREL [Concomitant]
     Route: 048
  7. PENTAERITHRITYL TETRANITRATE [Concomitant]
     Route: 065
  8. TORSEMIDE [Concomitant]
     Route: 048
  9. BISOPROLOL [Concomitant]
     Route: 048
  10. AMLODIPINE [Concomitant]
     Route: 048
  11. SILDENAFIL [Concomitant]
     Route: 048
  12. ALLOPURINOL [Concomitant]
     Route: 048
  13. VENLAFAXINE [Concomitant]
     Route: 048
  14. MIRTAZAPINE [Concomitant]
     Route: 048
  15. FLUTICASONE W/SALMETEROL [Concomitant]
     Route: 065
  16. TIOTROPIUM BROMIDE [Concomitant]
     Route: 065
  17. ACETYLCYSTEINE [Concomitant]
     Route: 048

REACTIONS (1)
  - LARYNGEAL OEDEMA [None]
